FAERS Safety Report 5004311-0 (Version None)
Quarter: 2006Q2

REPORT INFORMATION
  Report Type: 
  Country: None (occurrence: None)
  Receive Date: 20060517
  Receipt Date: 20051028
  Transmission Date: 20061013
  Serious: Yes (Death, Hospitalization, Other)
  Sender: FDA-Public Use
  Company Number: US-MERCK-0510USA09955

PATIENT
  Age: 82 Year
  Sex: Male

DRUGS (3)
  1. VIOXX [Suspect]
     Indication: PAIN
     Route: 048
     Dates: start: 20000831, end: 20020507
  2. VIOXX [Suspect]
     Indication: ARTHRITIS
     Route: 048
     Dates: start: 20000831, end: 20020507
  3. ASPIRIN [Concomitant]
     Route: 065

REACTIONS (3)
  - DEATH [None]
  - MYOCARDIAL INFARCTION [None]
  - RENAL FAILURE [None]
